FAERS Safety Report 22184509 (Version 3)
Quarter: 2023Q2

REPORT INFORMATION
  Report Type: Spontaneous
  Country: CN (occurrence: CN)
  Receive Date: 20230407
  Receipt Date: 20230428
  Transmission Date: 20230721
  Serious: Yes (Hospitalization, Other)
  Sender: FDA-Public Use
  Company Number: CN-NOVOPROD-1045580

PATIENT
  Age: 28 Year
  Sex: Female

DRUGS (3)
  1. NOVOLIN R [Suspect]
     Active Substance: INSULIN HUMAN
     Dosage: 24 IU, QD (6 U IN THE MORNING, 8 U AT NOON, AND 10 U IN THE EVENING)
     Dates: start: 20230410
  2. NOVOLIN R [Suspect]
     Active Substance: INSULIN HUMAN
     Indication: Gestational diabetes
     Dosage: 6 U IN THE MORNING, 8 U AT NOON, AND 10 U IN THE EVENING, AND BEFORE SLEEP
  3. NOVOLIN N [Suspect]
     Active Substance: INSULIN HUMAN
     Indication: Gestational diabetes
     Dosage: 6-8 U BEFORE SLEEP
     Dates: start: 20230410

REACTIONS (6)
  - Preterm premature rupture of membranes [Unknown]
  - Palpitations [Unknown]
  - Cold sweat [Unknown]
  - Seizure [Unknown]
  - Loss of consciousness [Unknown]
  - Maternal exposure during pregnancy [Unknown]

NARRATIVE: CASE EVENT DATE: 20230326
